FAERS Safety Report 10127317 (Version 1)
Quarter: 2014Q2

REPORT INFORMATION
  Report Type: Spontaneous
  Country: CH (occurrence: CH)
  Receive Date: 20140428
  Receipt Date: 20140428
  Transmission Date: 20141212
  Serious: Yes (Other)
  Sender: FDA-Public Use
  Company Number: CH-MYLANLABS-2014S1009056

PATIENT
  Age: 68 Year
  Sex: Female

DRUGS (3)
  1. HYDROXYCHLOROQUINE [Suspect]
     Indication: DERMATOMYOSITIS
     Dosage: 400MG/DAY 5 DAYS/WEEK AND 200MG/DAY 2 DAYS/WEEK
     Route: 065
  2. HYDROXYCHLOROQUINE [Suspect]
     Indication: OFF LABEL USE
     Dosage: 400MG/DAY 5 DAYS/WEEK AND 200MG/DAY 2 DAYS/WEEK
     Route: 065
  3. RITUXIMAB [Suspect]
     Indication: DERMATOMYOSITIS
     Dosage: DOSES ADMINISTERED 15 DAYS APART
     Route: 065

REACTIONS (3)
  - Extremity necrosis [Recovered/Resolved]
  - Gastrointestinal pain [Unknown]
  - Diarrhoea [Unknown]
